FAERS Safety Report 13585850 (Version 1)
Quarter: 2017Q2

REPORT INFORMATION
  Report Type: Spontaneous
  Country: DE (occurrence: DE)
  Receive Date: 20170526
  Receipt Date: 20170526
  Transmission Date: 20170830
  Serious: Yes (Death)
  Sender: FDA-Public Use
  Company Number: DE-IPSEN BIOPHARMACEUTICALS, INC.-2017-04400

PATIENT

DRUGS (2)
  1. MECASERMIN [Suspect]
     Active Substance: MECASERMIN
     Indication: INSULIN RESISTANCE SYNDROME
     Route: 058
  2. MECASERMIN [Suspect]
     Active Substance: MECASERMIN
     Indication: OFF LABEL USE
     Dosage: NOT REPORTED
     Route: 058

REACTIONS (6)
  - Off label use [Unknown]
  - Wrong technique in product usage process [Unknown]
  - Adenoidal hypertrophy [Unknown]
  - Product use issue [Unknown]
  - Respiratory tract infection [Fatal]
  - Overdose [Unknown]
